FAERS Safety Report 9363511 (Version 1)
Quarter: 2013Q2

REPORT INFORMATION
  Report Type: Report from Study
  Country: CA (occurrence: CA)
  Receive Date: 20130624
  Receipt Date: 20130624
  Transmission Date: 20140414
  Serious: Yes (Other)
  Sender: FDA-Public Use
  Company Number: CA-JNJFOC-20130612382

PATIENT
  Sex: Female
  Weight: 114 kg

DRUGS (5)
  1. REMICADE [Suspect]
     Indication: CROHN^S DISEASE
     Route: 042
     Dates: start: 201302
  2. REMICADE [Suspect]
     Indication: CROHN^S DISEASE
     Route: 042
     Dates: start: 200604
  3. VITAMIN B12 [Concomitant]
     Route: 065
  4. WARFARIN [Concomitant]
     Route: 065
  5. QUESTRAN [Concomitant]
     Route: 065

REACTIONS (1)
  - Fistula [Unknown]
